FAERS Safety Report 9256943 (Version 2)
Quarter: 2013Q2

REPORT INFORMATION
  Report Type: Spontaneous
  Country: US (occurrence: None)
  Receive Date: 20130423
  Receipt Date: 20130514
  Transmission Date: 20140414
  Serious: Yes (Other)
  Sender: FDA-Public Use
  Company Number: JPI-P-031144

PATIENT
  Age: 21 Year
  Sex: Female

DRUGS (1)
  1. XYREM [Suspect]
     Indication: CATAPLEXY
     Dosage: (2.25 GM, 2 IN 1 D)
     Route: 048
     Dates: start: 20090507

REACTIONS (3)
  - Sleep apnoea syndrome [None]
  - Fatigue [None]
  - Knee operation [None]
